FAERS Safety Report 13387643 (Version 1)
Quarter: 2017Q1

REPORT INFORMATION
  Report Type: Spontaneous
  Country: US (occurrence: US)
  Receive Date: 20170330
  Receipt Date: 20170330
  Transmission Date: 20170429
  Serious: No
  Sender: FDA-Public Use
  Company Number: US-TEVA-746823ACC

PATIENT
  Age: 17 Year
  Sex: Female
  Weight: 56.3 kg

DRUGS (1)
  1. PLAN B ONE-STEP [Suspect]
     Active Substance: LEVONORGESTREL
     Indication: POST COITAL CONTRACEPTION
     Dates: start: 20170209, end: 20170209

REACTIONS (5)
  - Abdominal pain upper [Recovered/Resolved]
  - Menstruation delayed [Not Recovered/Not Resolved]
  - Vaginal haemorrhage [Unknown]
  - Vaginal haemorrhage [Recovered/Resolved]
  - Vaginal haemorrhage [Recovered/Resolved]

NARRATIVE: CASE EVENT DATE: 20170215
